FAERS Safety Report 8159841-X (Version None)
Quarter: 2012Q1

REPORT INFORMATION
  Report Type: 
  Country: None (occurrence: None)
  Receive Date: 20120223
  Receipt Date: 20120214
  Transmission Date: 20120608
  Serious: Yes (Other)
  Sender: FDA-Public Use
  Company Number: DE-JNJFOC-20120209820

PATIENT

DRUGS (6)
  1. PREDNISONE [Suspect]
     Indication: HODGKIN'S DISEASE
     Route: 048
  2. DOXORUBICIN HCL [Suspect]
     Indication: HODGKIN'S DISEASE
     Route: 042
  3. VINBLASTINE SULFATE [Suspect]
     Indication: HODGKIN'S DISEASE
     Route: 042
  4. NEUPOGEN [Concomitant]
     Route: 065
  5. EPOGEN [Concomitant]
     Route: 065
  6. GEMCITABINE [Suspect]
     Indication: HODGKIN'S DISEASE
     Route: 042

REACTIONS (15)
  - NAUSEA [None]
  - MUCOSAL INFLAMMATION [None]
  - GASTROINTESTINAL DISORDER [None]
  - DRUG INEFFECTIVE [None]
  - CARDIAC DISORDER [None]
  - NERVOUS SYSTEM DISORDER [None]
  - INFECTION [None]
  - ADVERSE EVENT [None]
  - HODGKIN'S DISEASE [None]
  - LEUKOPENIA [None]
  - ANAEMIA [None]
  - THROMBOCYTOPENIA [None]
  - VOMITING [None]
  - RESPIRATORY DISORDER [None]
  - DRUG EFFECT DECREASED [None]
